FAERS Safety Report 13781201 (Version 1)
Quarter: 2017Q3

REPORT INFORMATION
  Report Type: Spontaneous
  Country: US (occurrence: US)
  Receive Date: 20170723
  Receipt Date: 20170723
  Transmission Date: 20171127
  Serious: Yes (Life-Threatening)
  Sender: FDA-Public Use
  Company Number: None

PATIENT
  Age: 9 Year
  Sex: Female
  Weight: 42.3 kg

DRUGS (2)
  1. AUGMENTIN [Suspect]
     Active Substance: AMOXICILLIN\CLAVULANATE POTASSIUM
     Indication: URINARY TRACT INFECTION
     Dosage: ?          OTHER STRENGTH:MG;QUANTITY:1 TABLET(S);?
     Route: 048
  2. CLARITIN [Concomitant]
     Active Substance: LORATADINE

REACTIONS (7)
  - Feeling hot [None]
  - Thirst [None]
  - Pyrexia [None]
  - Anxiety [None]
  - Fear [None]
  - Feeling abnormal [None]
  - Hyperhidrosis [None]

NARRATIVE: CASE EVENT DATE: 20170723
